FAERS Safety Report 5137336-5 (Version None)
Quarter: 2006Q4

REPORT INFORMATION
  Report Type: 
  Country: None (occurrence: None)
  Receive Date: 20061030
  Receipt Date: 20051013
  Transmission Date: 20070319
  Serious: No
  Sender: FDA-Public Use
  Company Number: US-GLAXOSMITHKLINE-A0578153A

PATIENT
  Age: 69 Year
  Sex: Female

DRUGS (17)
  1. ADVAIR HFA [Suspect]
     Indication: CHRONIC OBSTRUCTIVE PULMONARY DISEASE
     Dosage: 250MCG TWICE PER DAY
     Route: 055
     Dates: start: 20050915, end: 20051001
  2. ALBUTEROL [Concomitant]
  3. ZOFRAN [Concomitant]
  4. VICODIN [Concomitant]
  5. ZOLOFT [Concomitant]
  6. LISINOPRIL [Concomitant]
  7. PREVACID [Concomitant]
  8. CELEBREX [Concomitant]
  9. PROVERA [Concomitant]
  10. PREMARIN [Concomitant]
  11. VERAPAMIL [Concomitant]
  12. NEURONTIN [Concomitant]
  13. SKELAXIN [Concomitant]
  14. MULTI-VITAMIN [Concomitant]
  15. CALCIUM GLUCONATE [Concomitant]
  16. WELLBUTRIN [Concomitant]
  17. NICOTROL [Concomitant]

REACTIONS (1)
  - NAUSEA [None]
